FAERS Safety Report 7296308-5 (Version None)
Quarter: 2011Q1

REPORT INFORMATION
  Report Type: 
  Country: None (occurrence: None)
  Receive Date: 20110204
  Receipt Date: 20110125
  Transmission Date: 20110831
  Serious: Yes (Other)
  Sender: FDA-Public Use
  Company Number: 815658

PATIENT
  Age: 4 Year
  Sex: Female

DRUGS (2)
  1. CYCLOSPORINE [Suspect]
     Indication: GLOMERULONEPHRITIS MINIMAL LESION
     Dosage: 5 MG/KG/DAY
  2. ACYCLOVIR [Suspect]
     Indication: VARICELLA
     Dosage: 1,200 MG/M^2/DAY, INTRAVENOUS
     Route: 042

REACTIONS (1)
  - TUBULOINTERSTITIAL NEPHRITIS [None]
